FAERS Safety Report 16665567 (Version 1)
Quarter: 2019Q3

REPORT INFORMATION
  Report Type: Spontaneous
  Country: US (occurrence: US)
  Receive Date: 20190804
  Receipt Date: 20190804
  Transmission Date: 20191004
  Serious: No
  Sender: FDA-Public Use
  Company Number: US-JNJFOC-20190800484

PATIENT
  Sex: Female
  Weight: 75.82 kg

DRUGS (1)
  1. TYLENOL [Suspect]
     Active Substance: ACETAMINOPHEN
     Indication: ARTHRALGIA
     Dosage: STARTED OFF TAKING 2 THEN SWITCHED TO 1 CAPLET EVERY 8 HOURS
     Route: 048
     Dates: end: 20190730

REACTIONS (1)
  - Incorrect dose administered [Unknown]
